FAERS Safety Report 9726140 (Version 1)
Quarter: 2013Q4

REPORT INFORMATION
  Report Type: Spontaneous
  Country: US (occurrence: None)
  Receive Date: 20131127
  Receipt Date: 20131127
  Transmission Date: 20140711
  Serious: Yes (Hospitalization)
  Sender: FDA-Public Use
  Company Number: GB-20130047

PATIENT
  Age: 76 Year
  Sex: Male

DRUGS (1)
  1. DOTAREM (SER) (GADOTERIC ACID), 12GS742A [Suspect]
     Indication: NUCLEAR MAGNETIC RESONANCE IMAGING
     Dosage: 10 SECONDS
     Route: 042
     Dates: start: 20131104, end: 20131104

REACTIONS (9)
  - Unresponsive to stimuli [None]
  - Malaise [None]
  - Paraesthesia [None]
  - Hyperhidrosis [None]
  - Genital paraesthesia [None]
  - Paraesthesia [None]
  - Protrusion tongue [None]
  - Cold sweat [None]
  - Posture abnormal [None]
